FAERS Safety Report 8305905-7 (Version None)
Quarter: 2012Q1

REPORT INFORMATION
  Report Type: 
  Country: None (occurrence: None)
  Receive Date: 20120326
  Receipt Date: 20111223
  Transmission Date: 20120608
  Serious: Yes (Other)
  Sender: FDA-Public Use
  Company Number: PHEH2011US010384

PATIENT
  Age: 70 Year
  Sex: Female
  Weight: 55.8 kg

DRUGS (5)
  1. GABAPENTIN [Concomitant]
  2. VIVELLE-DOT [Suspect]
     Indication: HORMONE REPLACEMENT THERAPY
     Dosage: 0.1 MG, QW2, TRANSDERMAL
     Route: 062
     Dates: start: 20110824, end: 20111206
  3. ACYCLOVIR [Concomitant]
  4. CLORAZEPATE DIPOTASSIUM [Concomitant]
  5. LISINOPRIL [Concomitant]

REACTIONS (7)
  - NAUSEA [None]
  - HEADACHE [None]
  - BREAST PAIN [None]
  - FATIGUE [None]
  - ALOPECIA [None]
  - ABDOMINAL DISTENSION [None]
  - DEPRESSION [None]
